FAERS Safety Report 4666398-4 (Version None)
Quarter: 2005Q2

REPORT INFORMATION
  Report Type: 
  Country: None (occurrence: None)
  Receive Date: 20050519
  Receipt Date: 20050509
  Transmission Date: 20051028
  Serious: Yes (Other)
  Sender: FDA-Public Use
  Company Number: 2005GB00901

PATIENT
  Age: 77 Year
  Weight: 60 kg

DRUGS (7)
  1. ZAFIRLUKAST [Suspect]
     Indication: ASTHMA
     Route: 048
     Dates: start: 20050219, end: 20050225
  2. ZAFIRLUKAST [Suspect]
     Indication: COUGH
     Route: 048
     Dates: start: 20050219, end: 20050225
  3. DEFLAZACORT [Concomitant]
     Route: 048
     Dates: start: 19800101
  4. BENDROFLUAZIDE [Concomitant]
     Indication: HYPERTENSION
     Route: 048
  5. BISOPROLOL [Concomitant]
     Indication: HYPERTENSION
     Route: 048
  6. GLIBENCLAMIDE [Concomitant]
     Indication: DIABETES MELLITUS
     Route: 048
     Dates: start: 20000101
  7. LANSOPRAZOLE [Concomitant]
     Route: 048

REACTIONS (1)
  - BLOOD GLUCOSE INCREASED [None]
